FAERS Safety Report 7275857-X (Version None)
Quarter: 2011Q1

REPORT INFORMATION
  Report Type: 
  Country: None (occurrence: None)
  Receive Date: 20110204
  Receipt Date: 20110204
  Transmission Date: 20110831
  Serious: Yes (Death, Hospitalization)
  Sender: FDA-Public Use
  Company Number: JP-JNJFOC-20101202507

PATIENT
  Sex: Female
  Weight: 41 kg

DRUGS (11)
  1. GOLIMUMAB [Suspect]
     Route: 058
  2. MOBIC [Concomitant]
     Indication: RHEUMATOID ARTHRITIS
     Route: 048
  3. GOLIMUMAB [Suspect]
     Indication: RHEUMATOID ARTHRITIS
     Route: 058
  4. MUCOSTA [Concomitant]
     Indication: PROPHYLAXIS
     Route: 048
  5. DIOVAN [Concomitant]
     Indication: HYPERTENSION
     Route: 048
  6. PREDNISOLONE [Suspect]
     Indication: RHEUMATOID ARTHRITIS
     Route: 048
  7. RHEUMATREX [Suspect]
     Indication: RHEUMATOID ARTHRITIS
     Route: 048
  8. TAGAMET [Concomitant]
     Indication: PROPHYLAXIS
     Route: 048
  9. ONEALFA [Concomitant]
     Indication: OSTEOPOROSIS
     Route: 048
  10. CALBLOCK [Concomitant]
     Indication: HYPERTENSION
     Route: 048
  11. FOLIAMIN [Concomitant]
     Indication: PROPHYLAXIS
     Route: 048

REACTIONS (2)
  - PNEUMONIA [None]
  - AMYLOIDOSIS [None]
